FAERS Safety Report 12828016 (Version 1)
Quarter: 2016Q4

REPORT INFORMATION
  Report Type: Report from Study
  Country: VE (occurrence: VE)
  Receive Date: 20161007
  Receipt Date: 20161007
  Transmission Date: 20170207
  Serious: Yes (Hospitalization, Other)
  Sender: FDA-Public Use
  Company Number: PHHY2016VE136183

PATIENT
  Sex: Female

DRUGS (5)
  1. TAMOXIFEN [Concomitant]
     Active Substance: TAMOXIFEN
     Indication: PRODUCT USED FOR UNKNOWN INDICATION
     Route: 065
  2. ZOMETA [Suspect]
     Active Substance: ZOLEDRONIC ACID
     Indication: BONE CANCER
  3. ZOLEDRONIC ACID [Concomitant]
     Active Substance: ZOLEDRONIC ACID
     Indication: OSTEOPENIA
     Dosage: EVERY 6 MONTHS
     Route: 065
  4. SANDOSTATIN [Concomitant]
     Active Substance: OCTREOTIDE ACETATE
     Indication: PRODUCT USED FOR UNKNOWN INDICATION
     Dosage: 40 MG, QMO
     Route: 065
     Dates: start: 201601
  5. ZOMETA [Suspect]
     Active Substance: ZOLEDRONIC ACID
     Indication: BREAST CANCER
     Dosage: 4 MG, UNK (EVERY 6 MONTHS)
     Route: 065
     Dates: start: 2014

REACTIONS (8)
  - Second primary malignancy [Unknown]
  - Lymphadenopathy [Unknown]
  - Synovial cyst [Unknown]
  - Neuroendocrine carcinoma metastatic [Unknown]
  - Inflammation [Unknown]
  - Peripheral swelling [Unknown]
  - Abasia [Unknown]
  - Inappropriate schedule of drug administration [Unknown]
